FAERS Safety Report 14119119 (Version 1)
Quarter: 2017Q4

REPORT INFORMATION
  Report Type: Spontaneous
  Country: US (occurrence: US)
  Receive Date: 20171023
  Receipt Date: 20171023
  Transmission Date: 20180321
  Serious: Yes (Other)
  Sender: FDA-Public Use
  Company Number: None

PATIENT
  Age: 5 Year
  Sex: Female

DRUGS (3)
  1. TACROLIMUS. [Concomitant]
     Active Substance: TACROLIMUS
  2. ASPIRIN. [Concomitant]
     Active Substance: ASPIRIN
  3. MYCOPHENOLIC ACID. [Suspect]
     Active Substance: MYCOPHENOLIC ACID
     Indication: PROPHYLAXIS AGAINST TRANSPLANT REJECTION
     Route: 048
     Dates: start: 20170512, end: 20171005

REACTIONS (4)
  - Decreased appetite [None]
  - Abdominal pain [None]
  - Treatment noncompliance [None]
  - Therapy cessation [None]

NARRATIVE: CASE EVENT DATE: 20171005
